FAERS Safety Report 7711101-4 (Version None)
Quarter: 2011Q3

REPORT INFORMATION
  Report Type: 
  Country: None (occurrence: None)
  Receive Date: 20110826
  Receipt Date: 20110818
  Transmission Date: 20111222
  Serious: Yes (Hospitalization, Other)
  Sender: FDA-Public Use
  Company Number: US-BIOGENIDEC-2006BI016977

PATIENT
  Age: 77 Year
  Sex: Male

DRUGS (2)
  1. AVONEX [Suspect]
     Indication: MULTIPLE SCLEROSIS
     Route: 030
     Dates: start: 20010830
  2. AVONEX [Suspect]
     Route: 030

REACTIONS (3)
  - COLON CANCER [None]
  - PROSTATE CANCER [None]
  - INTESTINAL OBSTRUCTION [None]
